FAERS Safety Report 14797394 (Version 1)
Quarter: 2018Q2

REPORT INFORMATION
  Report Type: Spontaneous
  Country: US (occurrence: US)
  Receive Date: 20180424
  Receipt Date: 20180424
  Transmission Date: 20180711
  Serious: No
  Sender: FDA-Public Use
  Company Number: US-TEVA-777969ACC

PATIENT
  Age: 57 Year
  Sex: Male
  Weight: 72.57 kg

DRUGS (4)
  1. METOPROLOL SUCCINATE ER [Concomitant]
     Active Substance: METOPROLOL SUCCINATE
     Indication: HYPERTENSION
     Dosage: 25 MILLIGRAM DAILY;
  2. FAMOTIDINE. [Suspect]
     Active Substance: FAMOTIDINE
     Route: 048
  3. CENTRUM MEN UNDER 50 [Concomitant]
     Indication: MINERAL SUPPLEMENTATION
     Dosage: 1 DOSAGE FORMS DAILY;
     Route: 048
     Dates: start: 20170429, end: 20170502
  4. CITALOPRAM [Concomitant]
     Active Substance: CITALOPRAM HYDROBROMIDE
     Indication: HYPERTENSION
     Dosage: 10 MILLIGRAM DAILY;

REACTIONS (3)
  - Feeling abnormal [Not Recovered/Not Resolved]
  - Product commingling [Unknown]
  - Gastrointestinal disorder [Not Recovered/Not Resolved]

NARRATIVE: CASE EVENT DATE: 20170429
